FAERS Safety Report 6710756-0 (Version None)
Quarter: 2010Q2

REPORT INFORMATION
  Report Type: 
  Country: None (occurrence: None)
  Receive Date: 20100504
  Receipt Date: 20100504
  Transmission Date: 20101027
  Serious: Yes (Other)
  Sender: FDA-Public Use
  Company Number: None

PATIENT
  Age: 9 Month
  Sex: Male
  Weight: 7.2576 kg

DRUGS (2)
  1. MOTRIN [Suspect]
     Indication: PYREXIA
     Dosage: 1.25ML 1-2 TIMES/DAY PO ON/OFF 2 WEEKS FEB 2010
     Route: 048
  2. MOTRIN [Suspect]
     Indication: TEETHING
     Dosage: 1.25ML 1-2 TIMES/DAY PO ON/OFF 2 WEEKS FEB 2010
     Route: 048

REACTIONS (5)
  - AGITATION [None]
  - CYST [None]
  - IRRITABILITY [None]
  - PAIN [None]
  - PENIS DISORDER [None]
